FAERS Safety Report 8582684-X (Version None)
Quarter: 2012Q3

REPORT INFORMATION
  Report Type: 
  Country: None (occurrence: None)
  Receive Date: 20120809
  Receipt Date: 20120801
  Transmission Date: 20120928
  Serious: Yes (Death)
  Sender: FDA-Public Use
  Company Number: US-CELGENEUS-163-21880-12053672

PATIENT
  Sex: Male

DRUGS (28)
  1. CO Q-10 [Concomitant]
     Dosage: 300 MILLIGRAM
     Route: 048
  2. NIASPAN [Concomitant]
     Dosage: 1000
     Route: 048
  3. ZOCOR [Concomitant]
     Dosage: 20 MILLIGRAM
     Route: 048
  4. SENNA-MINT WAF [Concomitant]
     Dosage: 2 TABLET
     Route: 048
  5. ASPIRIN [Concomitant]
     Dosage: 325 MILLIGRAM
     Route: 048
  6. FISH OIL [Concomitant]
     Route: 048
  7. METHADONE HYDROCHLORIDE [Concomitant]
     Dosage: 15 MILLIGRAM
     Route: 041
  8. PANTOPRAZOLE [Concomitant]
     Dosage: 40 MILLIGRAM
     Route: 048
  9. ACETAMINOPHEN [Concomitant]
     Dosage: 3000 MILLIGRAM
     Route: 048
  10. METHADONE HYDROCHLORIDE [Concomitant]
     Dosage: 30 MILLIGRAM
     Route: 048
  11. REVLIMID [Suspect]
     Dosage: 10 MILLIGRAM
     Route: 048
     Dates: start: 20101101, end: 20120501
  12. DEXAMETHASONE [Concomitant]
     Dosage: 3.4286 MILLIGRAM
     Route: 048
  13. VITAMIN D [Concomitant]
     Dosage: 2000 UNIT
     Route: 048
  14. ATIVAN [Concomitant]
     Dosage: 1 MILLIGRAM
     Route: 065
  15. REVLIMID [Suspect]
     Indication: MULTIPLE MYELOMA
     Dosage: 5 MILLIGRAM
     Route: 048
     Dates: start: 20080930, end: 20101101
  16. FLOMAX [Concomitant]
     Dosage: .8 MILLIGRAM
     Route: 065
     Dates: start: 20120521
  17. DILAUDID [Concomitant]
     Indication: PAIN
     Dosage: 96 MILLIGRAM
     Route: 041
  18. POLYETHYLENE GLYCOL [Concomitant]
     Dosage: 17 GRAM
     Route: 048
  19. ATIVAN [Concomitant]
     Dosage: 4 MILLIGRAM
     Route: 065
  20. FLOMAX [Concomitant]
     Dosage: .4 MILLIGRAM
     Route: 048
  21. FUROSEMIDE [Concomitant]
     Dosage: 20 MILLIGRAM
     Route: 048
  22. PANTOPRAZOLE [Concomitant]
     Dosage: 20 MILLIGRAM
     Route: 048
  23. ASCORBIC ACID [Concomitant]
     Dosage: 1000 MILLIGRAM
     Route: 048
  24. HALDOL [Concomitant]
     Indication: PAIN
     Dosage: 4 MILLIGRAM
     Route: 065
  25. DEXAMETHASONE [Concomitant]
     Dosage: 1.1429 MILLIGRAM
     Route: 048
     Dates: start: 20120501
  26. PLAVIX [Concomitant]
     Dosage: 75 MILLIGRAM
     Route: 048
  27. DILAUDID [Concomitant]
     Route: 065
  28. HALDOL [Concomitant]
     Dosage: 1 MILLIGRAM
     Route: 065

REACTIONS (2)
  - SEPTIC SHOCK [None]
  - MULTIPLE MYELOMA [None]
